FAERS Safety Report 10916513 (Version 1)
Quarter: 2015Q1

REPORT INFORMATION
  Report Type: Spontaneous
  Country: US (occurrence: None)
  Receive Date: 20150312
  Receipt Date: 20150312
  Transmission Date: 20150721
  Serious: No
  Sender: FDA-Public Use
  Company Number: None

PATIENT
  Age: 15 Year
  Sex: Male
  Weight: 39.46 kg

DRUGS (2)
  1. DEPAKOTE ER [Suspect]
     Active Substance: DIVALPROEX SODIUM
     Indication: AFFECTIVE DISORDER
     Dosage: 3 TABLETS DAILY
     Route: 048
     Dates: start: 20140821, end: 20141125
  2. DEPAKOTE ER [Suspect]
     Active Substance: DIVALPROEX SODIUM
     Indication: ABNORMAL BEHAVIOUR
     Dosage: 3 TABLETS DAILY
     Route: 048
     Dates: start: 20140821, end: 20141125

REACTIONS (2)
  - Abdominal discomfort [None]
  - Abdominal pain upper [None]

NARRATIVE: CASE EVENT DATE: 20150204
